FAERS Safety Report 15320421 (Version 1)
Quarter: 2018Q3

REPORT INFORMATION
  Report Type: Spontaneous
  Country: US (occurrence: US)
  Receive Date: 20180821
  Receipt Date: 20180821
  Transmission Date: 20181010
  Serious: Yes (Other)
  Sender: FDA-Public Use
  Company Number: None

PATIENT
  Age: 6 Year
  Sex: Female
  Weight: 27 kg

DRUGS (3)
  1. MIRALAX [Suspect]
     Active Substance: POLYETHYLENE GLYCOL 3350
     Indication: CONSTIPATION
     Dosage: ?          QUANTITY:4 TABLESPOON(S);?
     Route: 048
     Dates: start: 20171202, end: 20171225
  2. CHILDREN^S MULTIVITAMIN [Concomitant]
  3. FIBER GUMMIES [Concomitant]

REACTIONS (1)
  - Anxiety [None]

NARRATIVE: CASE EVENT DATE: 20171220
